FAERS Safety Report 24339696 (Version 5)
Quarter: 2024Q4

REPORT INFORMATION
  Report Type: Spontaneous
  Country: ES (occurrence: ES)
  Receive Date: 20240919
  Receipt Date: 20241022
  Transmission Date: 20250115
  Serious: Yes (Other)
  Sender: ALCON
  Company Number: ES-ALCON LABORATORIES-ALC2024ES004173

PATIENT

DRUGS (17)
  1. BSS [Suspect]
     Active Substance: CALCIUM CHLORIDE\MAGNESIUM CHLORIDE\POTASSIUM CHLORIDE\SODIUM ACETATE\SODIUM CHLORIDE\SODIUM CITRATE
     Indication: Cataract operation
     Dosage: UNK
     Route: 065
  2. CHONDROITIN SULFATE SODIUM NOS\HYALURONATE SODIUM [Suspect]
     Active Substance: CHONDROITIN SULFATE SODIUM NOS\HYALURONATE SODIUM
     Indication: Cataract operation
     Dosage: UNKNOWN
     Route: 065
     Dates: start: 20240723, end: 20240723
  3. LIDOCAINE HYDROCHLORIDE [Suspect]
     Active Substance: LIDOCAINE HYDROCHLORIDE
     Indication: Preoperative care
     Dosage: 50 ML/MG INJECTABLE 500 MG/10 ML
     Route: 065
  4. LIDOCAINE HYDROCHLORIDE [Suspect]
     Active Substance: LIDOCAINE HYDROCHLORIDE
     Indication: Postoperative care
     Dosage: UNK
     Route: 065
  5. MAXIDEX [Suspect]
     Active Substance: DEXAMETHASONE
     Indication: Postoperative care
     Dosage: UNK
     Route: 065
  6. POVIDONE-IODINE [Suspect]
     Active Substance: POVIDONE-IODINE
     Indication: Postoperative care
     Dosage: UNK
     Route: 065
  7. EPINEPHRINE [Concomitant]
     Active Substance: EPINEPHRINE
     Indication: Cataract operation
     Dosage: AMPOULE 1 MG/ML
     Route: 065
  8. BENOXINATE HYDROCHLORIDE\TETRACAINE HYDROCHLORIDE [Concomitant]
     Active Substance: BENOXINATE HYDROCHLORIDE\TETRACAINE HYDROCHLORIDE
     Indication: Cataract operation
     Dosage: 1 MG/ML + 4 MG/ML
     Route: 065
  9. TROPICAMIDE [Concomitant]
     Active Substance: TROPICAMIDE
     Indication: Cataract operation
     Dosage: 10 MG/ML
     Route: 065
  10. POVIDONE-IODINE [Concomitant]
     Active Substance: POVIDONE-IODINE
     Indication: Cataract operation
     Dosage: 100 MG/ML
     Route: 065
     Dates: start: 20240723, end: 20240723
  11. LIDOCAINE HYDROCHLORIDE [Concomitant]
     Active Substance: LIDOCAINE HYDROCHLORIDE
     Indication: Cataract operation
     Dosage: 20 MG/ML INJECTABLE 200 MG/10 ML
     Route: 065
     Dates: start: 20240723, end: 20240723
  12. PHENYLEPHRINE HYDROCHLORIDE [Concomitant]
     Active Substance: PHENYLEPHRINE HYDROCHLORIDE
     Indication: Cataract operation
     Dosage: 2 ML VIAL
     Route: 065
     Dates: start: 20240723, end: 20240723
  13. PHENYLEPHRINE HYDROCHLORIDE [Concomitant]
     Active Substance: PHENYLEPHRINE HYDROCHLORIDE
     Indication: Cataract operation
     Dosage: 100 MG/ML
     Route: 065
  14. POVIDONE-IODINE [Concomitant]
     Active Substance: POVIDONE-IODINE
     Indication: Preoperative care
     Dosage: 50 MG/ML (2 ML)
     Route: 065
  15. CEFUROXIME SODIUM [Concomitant]
     Active Substance: CEFUROXIME SODIUM
     Indication: Cataract operation
     Dosage: 50 MG POWDER RECONSTITUTED WITH 5ML  OF SODIUM CHLORIDE INJECTABLE SOLUTION
     Route: 065
     Dates: start: 20240723, end: 20240723
  16. SODIUM CHLORIDE [Concomitant]
     Active Substance: SODIUM CHLORIDE
     Indication: Cataract operation
     Dosage: 5 ML
     Route: 065
     Dates: start: 20240723, end: 20240723
  17. VIGAMOX [Concomitant]
     Active Substance: MOXIFLOXACIN HYDROCHLORIDE
     Indication: Cataract operation
     Dosage: UNK
     Route: 065

REACTIONS (1)
  - Non-infectious endophthalmitis [Recovered/Resolved]

NARRATIVE: CASE EVENT DATE: 20240901
